FAERS Safety Report 10883249 (Version 1)
Quarter: 2015Q1

REPORT INFORMATION
  Report Type: Report from Study
  Country: IT (occurrence: IT)
  Receive Date: 20150303
  Receipt Date: 20150303
  Transmission Date: 20150721
  Serious: Yes (Other)
  Sender: FDA-Public Use
  Company Number: IT-ABBVIE-15P-083-1351664-00

PATIENT
  Age: 67 Year
  Sex: Female
  Weight: 47 kg

DRUGS (1)
  1. LEVODOPA/CARBIDOPA [Suspect]
     Active Substance: CARBIDOPA\LEVODOPA
     Indication: PARKINSON^S DISEASE
     Dosage: MD 4,0 +3?CR 1,8?ED 1,0
     Route: 050
     Dates: start: 20141117

REACTIONS (1)
  - Granuloma [Unknown]

NARRATIVE: CASE EVENT DATE: 201412
